FAERS Safety Report 9558226 (Version 1)
Quarter: 2013Q3

REPORT INFORMATION
  Report Type: Spontaneous
  Country: JP (occurrence: JP)
  Receive Date: 20130926
  Receipt Date: 20130926
  Transmission Date: 20140515
  Serious: Yes (Hospitalization, Other)
  Sender: FDA-Public Use
  Company Number: JP-ROCHE-1280991

PATIENT
  Age: 57 Year
  Sex: Male

DRUGS (6)
  1. CELLCEPT [Suspect]
     Indication: PRODUCT USED FOR UNKNOWN INDICATION
     Route: 048
  2. CELLCEPT [Suspect]
     Route: 048
  3. CICLOSPORIN [Concomitant]
     Route: 065
  4. CICLOSPORIN [Concomitant]
     Dosage: DOSE REDUCED
     Route: 065
  5. PREDNISOLONE [Concomitant]
     Route: 065
  6. PREDNISOLONE [Concomitant]
     Dosage: DOSE REDUCED
     Route: 065

REACTIONS (3)
  - Lymphocele [Unknown]
  - Hydronephrosis [Unknown]
  - Proteinuria [Unknown]
